FAERS Safety Report 7014449-4 (Version None)
Quarter: 2010Q3

REPORT INFORMATION
  Report Type: 
  Country: None (occurrence: None)
  Receive Date: 20100922
  Receipt Date: 20100913
  Transmission Date: 20110219
  Serious: Yes (Hospitalization)
  Sender: FDA-Public Use
  Company Number: 2010MA002597

PATIENT
  Age: 16 Year
  Sex: Male

DRUGS (1)
  1. SULFATRIM PEDIATRIC [Suspect]
     Indication: STAPHYLOCOCCAL INFECTION

REACTIONS (10)
  - DYSURIA [None]
  - HEADACHE [None]
  - PAINFUL DEFAECATION [None]
  - PNEUMONIA [None]
  - SCAR [None]
  - SCARLET FEVER [None]
  - SEPSIS [None]
  - STEVENS-JOHNSON SYNDROME [None]
  - TOXIC EPIDERMAL NECROLYSIS [None]
  - VISION BLURRED [None]
